FAERS Safety Report 12421057 (Version 1)
Quarter: 2016Q2

REPORT INFORMATION
  Report Type: Spontaneous
  Country: US (occurrence: US)
  Receive Date: 20160531
  Receipt Date: 20160531
  Transmission Date: 20160815
  Serious: Yes (Other)
  Sender: FDA-Public Use
  Company Number: US-MDT-ADR-2016-00237

PATIENT
  Age: 67 Year
  Sex: Male

DRUGS (13)
  1. DOXAZOSIN [Suspect]
     Active Substance: DOXAZOSIN\DOXAZOSIN MESYLATE
  2. AMLODIPINE [Suspect]
     Active Substance: AMLODIPINE BESYLATE
  3. ASPIRIN. [Suspect]
     Active Substance: ASPIRIN
  4. ATENOLOL. [Suspect]
     Active Substance: ATENOLOL
  5. TAMSULOSIN [Suspect]
     Active Substance: TAMSULOSIN
  6. VITAMIN D3 [Suspect]
     Active Substance: CHOLECALCIFEROL
  7. LIORESAL [Suspect]
     Active Substance: BACLOFEN
     Dosage: 49.69 MCG/DAY
     Route: 037
  8. MULTI VITAMIN [Suspect]
     Active Substance: VITAMINS
  9. BACLOFEN. [Suspect]
     Active Substance: BACLOFEN
     Route: 048
  10. ATORVASTATIN [Suspect]
     Active Substance: ATORVASTATIN
  11. LISINOPRIL. [Suspect]
     Active Substance: LISINOPRIL
  12. FINASTERIDE. [Suspect]
     Active Substance: FINASTERIDE
  13. CITALOPRAM [Suspect]
     Active Substance: CITALOPRAM HYDROBROMIDE

REACTIONS (6)
  - Medical device site erosion [Recovered/Resolved]
  - Wound infection pseudomonas [Recovered/Resolved]
  - Implant site infection [Recovered/Resolved]
  - Pseudomonas test positive [Recovered/Resolved]
  - Wound dehiscence [Recovered/Resolved]
  - Acinetobacter test positive [Recovered/Resolved]

NARRATIVE: CASE EVENT DATE: 20150915
